FAERS Safety Report 4850927-1 (Version None)
Quarter: 2005Q4

REPORT INFORMATION
  Report Type: 
  Country: None (occurrence: None)
  Receive Date: 20051212
  Receipt Date: 20050402
  Transmission Date: 20060501
  Serious: Yes (Hospitalization)
  Sender: FDA-Public Use
  Company Number: DE-SANOFI-SYNTHELABO-A04200500309

PATIENT
  Sex: Male

DRUGS (3)
  1. UROXATRAL [Suspect]
     Indication: BENIGN PROSTATIC HYPERPLASIA
     Route: 048
     Dates: start: 20050330, end: 20050331
  2. L-THYROXIN [Concomitant]
     Indication: HYPOTHYROIDISM
     Route: 048
  3. GLIBEN HEXAL [Concomitant]
     Indication: DIABETES MELLITUS NON-INSULIN-DEPENDENT
     Route: 048
     Dates: end: 20050401

REACTIONS (4)
  - ABDOMINAL PAIN UPPER [None]
  - HAEMATURIA [None]
  - JAUNDICE CHOLESTATIC [None]
  - JAUNDICE HEPATOCELLULAR [None]
